FAERS Safety Report 7823026-4 (Version None)
Quarter: 2011Q4

REPORT INFORMATION
  Report Type: 
  Country: None (occurrence: None)
  Receive Date: 20111018
  Receipt Date: 20110420
  Transmission Date: 20120403
  Serious: No
  Sender: FDA-Public Use
  Company Number: US-ASTRAZENECA-2011SE22631

PATIENT
  Age: 69 Year
  Sex: Male

DRUGS (4)
  1. SYMBICORT [Suspect]
     Indication: ASTHMA
     Route: 055
     Dates: start: 20101001, end: 20101001
  2. SYMBICORT [Suspect]
     Route: 055
  3. SYMBICORT [Suspect]
     Indication: EMPHYSEMA
     Route: 055
     Dates: start: 20101001, end: 20101001
  4. SYMBICORT [Suspect]
     Route: 055

REACTIONS (1)
  - URINARY TRACT INFECTION [None]
